FAERS Safety Report 14345511 (Version 4)
Quarter: 2018Q3

REPORT INFORMATION
  Report Type: Spontaneous
  Country: US (occurrence: US)
  Receive Date: 20180103
  Receipt Date: 20180903
  Transmission Date: 20181010
  Serious: Yes (Other)
  Sender: FDA-Public Use
  Company Number: US-BRISTOL-MYERS SQUIBB COMPANY-BMS-2017-118878

PATIENT
  Sex: Female

DRUGS (1)
  1. OPDIVO [Suspect]
     Active Substance: NIVOLUMAB
     Indication: METASTASES TO CENTRAL NERVOUS SYSTEM
     Route: 042

REACTIONS (2)
  - Confusional state [Unknown]
  - Pulmonary oedema [Unknown]
